FAERS Safety Report 6008856-6 (Version None)
Quarter: 2008Q4

REPORT INFORMATION
  Report Type: 
  Country: None (occurrence: None)
  Receive Date: 20081217
  Receipt Date: 20081217
  Transmission Date: 20090506
  Serious: Yes (Hospitalization)
  Sender: FDA-Public Use
  Company Number: None

PATIENT
  Sex: Male
  Weight: 92.1 kg

DRUGS (3)
  1. DAUNORUBICIN HCL [Suspect]
     Dosage: 370 MG
     Dates: start: 20081027, end: 20081128
  2. CYTARABINE [Suspect]
     Dosage: 1030 MG
     Dates: end: 20081031
  3. ETOPOSIDE [Suspect]
     Dosage: 412 MG
     Dates: end: 20081028

REACTIONS (3)
  - CARDIAC FAILURE CONGESTIVE [None]
  - ELECTROCARDIOGRAM T WAVE ABNORMAL [None]
  - SINUS TACHYCARDIA [None]
